FAERS Safety Report 5031495-0 (Version None)
Quarter: 2006Q2

REPORT INFORMATION
  Report Type: 
  Country: None (occurrence: None)
  Receive Date: 20060616
  Receipt Date: 20060612
  Transmission Date: 20061013
  Serious: Yes (Other)
  Sender: FDA-Public Use
  Company Number: 2006074182

PATIENT
  Sex: Female
  Weight: 79.3795 kg

DRUGS (2)
  1. DRAMAMINE [Suspect]
     Indication: VERTIGO
     Dosage: 1 TABLET AS NEEDED, ORAL
     Route: 048
     Dates: start: 19970101, end: 19990101
  2. DRUG, UNSPECIFIED (DRUG, UNSPECIFIED) [Suspect]
     Indication: HAIR DYE USER
     Dosage: UNSPECIFIED UNKNOWN
     Dates: start: 19990101

REACTIONS (5)
  - CONDITION AGGRAVATED [None]
  - DIZZINESS [None]
  - DYSPNOEA [None]
  - HYPERSENSITIVITY [None]
  - VOMITING [None]
